FAERS Safety Report 4421610-1 (Version None)
Quarter: 2004Q3

REPORT INFORMATION
  Report Type: 
  Country: None (occurrence: None)
  Receive Date: 20040806
  Receipt Date: 20040722
  Transmission Date: 20050211
  Serious: Yes (Other)
  Sender: FDA-Public Use
  Company Number: B0323025A

PATIENT
  Age: 69 Year
  Sex: Male

DRUGS (1)
  1. TEMOVATE [Suspect]
     Dosage: 50 GRAM (S)/TOPICAL
     Route: 061

REACTIONS (5)
  - ADRENAL CORTICAL INSUFFICIENCY [None]
  - ASTHENIA [None]
  - HYPOAESTHESIA [None]
  - OEDEMA [None]
  - PSORIASIS [None]
